FAERS Safety Report 8119658-9 (Version None)
Quarter: 2012Q1

REPORT INFORMATION
  Report Type: 
  Country: None (occurrence: None)
  Receive Date: 20120203
  Receipt Date: 20120116
  Transmission Date: 20120608
  Serious: Yes (Hospitalization)
  Sender: FDA-Public Use
  Company Number: JPI-P-019357

PATIENT
  Age: 43 Year
  Sex: Female
  Weight: 75.2971 kg

DRUGS (14)
  1. PREDNISONE TAB [Concomitant]
  2. XYREM [Suspect]
     Indication: INSOMNIA
     Dosage: (UNKNOWN), ORAL, 7.5 GM (3.75 GM, 2 IN 1 D), ORAL
     Route: 048
     Dates: start: 20060913
  3. XYREM [Suspect]
     Indication: FIBROMYALGIA
     Dosage: (UNKNOWN), ORAL, 7.5 GM (3.75 GM, 2 IN 1 D), ORAL
     Route: 048
     Dates: start: 20060913
  4. DOXYCYCLINE [Concomitant]
  5. PROMETHAZINE [Concomitant]
  6. IPRATROPIUM BROMIDE AND ALBUTEROL SULFATE [Concomitant]
  7. NABUMETONE [Concomitant]
  8. PANTOPRAZOLE [Concomitant]
  9. CETIRIZINE [Concomitant]
  10. ASPIRIN [Concomitant]
  11. VITAMIN D WITH CALCIUM [Concomitant]
  12. VERAPAMIL [Concomitant]
  13. BUDESONIDE [Concomitant]
  14. VITAMIN B-12 [Concomitant]

REACTIONS (2)
  - DYSPNOEA [None]
  - INTERVERTEBRAL DISC PROTRUSION [None]
